FAERS Safety Report 7906315-4 (Version None)
Quarter: 2011Q4

REPORT INFORMATION
  Report Type: 
  Country: None (occurrence: None)
  Receive Date: 20111109
  Receipt Date: 20111109
  Transmission Date: 20120403
  Serious: Yes (Hospitalization)
  Sender: FDA-Public Use
  Company Number: None

PATIENT
  Sex: Male

DRUGS (2)
  1. DEPAKOTE ER [Suspect]
     Indication: ATTENTION DEFICIT/HYPERACTIVITY DISORDER
     Dosage: IIII TABS DAILY ORALLY
     Route: 048
     Dates: start: 20100803, end: 20111014
  2. DEPAKOTE ER [Suspect]
     Indication: AUTISM
     Dosage: IIII TABS DAILY ORALLY
     Route: 048
     Dates: start: 20100803, end: 20111014

REACTIONS (1)
  - PANCREATITIS [None]
